FAERS Safety Report 20082687 (Version 1)
Quarter: 2021Q4

REPORT INFORMATION
  Report Type: Spontaneous
  Country: DE (occurrence: DE)
  Receive Date: 20211117
  Receipt Date: 20211117
  Transmission Date: 20220303
  Serious: Yes (Hospitalization)
  Sender: FDA-Public Use
  Company Number: DE-ADRED-07237-03

PATIENT
  Age: 80 Year
  Sex: Female
  Weight: 65 kg

DRUGS (8)
  1. APIXABAN [Suspect]
     Active Substance: APIXABAN
     Indication: Product used for unknown indication
     Dosage: 5 MILLIGRAM, BID
  2. ASPIRIN [Suspect]
     Active Substance: ASPIRIN
     Indication: Product used for unknown indication
     Dosage: 100 MG, 0-1-0-0
  3. TORSEMIDE [Concomitant]
     Active Substance: TORSEMIDE
     Dosage: 10 MG, 1-0-0-0
  4. CHLORTHALIDONE [Concomitant]
     Active Substance: CHLORTHALIDONE
     Dosage: 25 MG, 1-0-0-0
  5. CANDESARTAN [Concomitant]
     Active Substance: CANDESARTAN
     Dosage: 16 MG, 1-0-0-0
  6. LEVOTHYROXINUM NATRICUM [Concomitant]
     Dosage: 100 ?G, 1-0-0-0
  7. PANTOPRAZOLE [Concomitant]
     Active Substance: PANTOPRAZOLE
     Dosage: 40 MG, 1-0-0-0
  8. METAMIZOL                          /06276701/ [Concomitant]
     Dosage: 500 MG, 1-1-1-0

REACTIONS (8)
  - Muscular weakness [Unknown]
  - General physical health deterioration [Unknown]
  - Condition aggravated [Unknown]
  - Haematochezia [Unknown]
  - Anaemia [Unknown]
  - Renal impairment [Unknown]
  - Pallor [Unknown]
  - Dyspnoea [Unknown]
